FAERS Safety Report 5024649-0 (Version None)
Quarter: 2006Q2

REPORT INFORMATION
  Report Type: 
  Country: None (occurrence: None)
  Receive Date: 20060613
  Receipt Date: 20051017
  Transmission Date: 20061013
  Serious: Yes (Other)
  Sender: FDA-Public Use
  Company Number: BR-ROCHE-421742

PATIENT
  Age: 23 Year
  Sex: Female

DRUGS (2)
  1. ROACUTAN [Suspect]
     Indication: ACNE
     Route: 048
     Dates: start: 20050801, end: 20050923
  2. GRACIAL [Concomitant]
     Indication: CONTRACEPTION
     Route: 048
     Dates: end: 20050923

REACTIONS (2)
  - NO ADVERSE EFFECT [None]
  - PREGNANCY [None]
